FAERS Safety Report 6812183-4 (Version None)
Quarter: 2010Q3

REPORT INFORMATION
  Report Type: 
  Country: None (occurrence: None)
  Receive Date: 20100701
  Receipt Date: 20100628
  Transmission Date: 20110219
  Serious: Yes (Death)
  Sender: FDA-Public Use
  Company Number: US-CELGENEUS-163-21880-10060858

PATIENT
  Sex: Male

DRUGS (2)
  1. REVLIMID [Suspect]
     Indication: MANTLE CELL LYMPHOMA
     Route: 048
     Dates: start: 20090301, end: 20100301
  2. REVLIMID [Suspect]
     Dosage: VARIABLE DOSES
     Route: 048
     Dates: start: 20091101, end: 20100301

REACTIONS (1)
  - NEOPLASM PROGRESSION [None]
